FAERS Safety Report 13028337 (Version 2)
Quarter: 2017Q1

REPORT INFORMATION
  Report Type: Spontaneous
  Country: CN (occurrence: CN)
  Receive Date: 20161214
  Receipt Date: 20170130
  Transmission Date: 20170428
  Serious: Yes (Death, Other)
  Sender: FDA-Public Use
  Company Number: JP-PURDUE PHARMA-GBR-2016-0042353

PATIENT
  Age: 84 Year

DRUGS (1)
  1. MS CONTIN [Suspect]
     Active Substance: MORPHINE SULFATE
     Indication: PRODUCT USED FOR UNKNOWN INDICATION
     Dosage: 30 MG, DAILY
     Route: 048
     Dates: start: 20161206, end: 20161206

REACTIONS (3)
  - Death [Fatal]
  - Coma [Unknown]
  - Off label use [Unknown]

NARRATIVE: CASE EVENT DATE: 20161206
